FAERS Safety Report 10217298 (Version 1)
Quarter: 2014Q2

REPORT INFORMATION
  Report Type: Spontaneous
  Country: US (occurrence: US)
  Receive Date: 20140604
  Receipt Date: 20140604
  Transmission Date: 20141212
  Serious: Yes (Other)
  Sender: FDA-Public Use
  Company Number: US-ROXANE LABORATORIES, INC.-2014-RO-00846RO

PATIENT
  Age: 61 Year
  Sex: Male
  Weight: 77 kg

DRUGS (1)
  1. DEXAMETHASONE [Suspect]
     Indication: PLASMA CELL MYELOMA
     Route: 048
     Dates: start: 20110919, end: 20111006

REACTIONS (4)
  - Substance-induced mood disorder [Not Recovered/Not Resolved]
  - Bipolar I disorder [Unknown]
  - Catatonia [Unknown]
  - Complex partial seizures [Unknown]
